FAERS Safety Report 13270555 (Version 1)
Quarter: 2017Q1

REPORT INFORMATION
  Report Type: Report from Study
  Country: US (occurrence: US)
  Receive Date: 20170224
  Receipt Date: 20170224
  Transmission Date: 20170428
  Serious: Yes (Hospitalization)
  Sender: FDA-Public Use
  Company Number: US-SA-2017SA009137

PATIENT
  Age: 56 Year
  Sex: Female

DRUGS (1)
  1. LEMTRADA [Suspect]
     Active Substance: ALEMTUZUMAB
     Indication: MULTIPLE SCLEROSIS
     Route: 041
     Dates: start: 20161227, end: 20161231

REACTIONS (9)
  - Blood pressure increased [Recovered/Resolved]
  - Speech disorder [Recovering/Resolving]
  - Urinary retention [Unknown]
  - Lethargy [Recovered/Resolved]
  - Urinary tract infection [Unknown]
  - Dehydration [Recovered/Resolved]
  - Movement disorder [Recovering/Resolving]
  - Gait disturbance [Recovered/Resolved]
  - Headache [Recovered/Resolved]

NARRATIVE: CASE EVENT DATE: 20161229
